FAERS Safety Report 10363870 (Version 2)
Quarter: 2014Q3

REPORT INFORMATION
  Report Type: Spontaneous
  Country: IT (occurrence: None)
  Receive Date: 20140801
  Receipt Date: 20140807
  Transmission Date: 20150326
  Serious: Yes (Other)
  Sender: FDA-Public Use
  Company Number: AUR-APL-2014-07912

PATIENT
  Age: 18 Year
  Sex: Female

DRUGS (6)
  1. TOPAMAX [Suspect]
     Active Substance: TOPIRAMATE
     Indication: MIGRAINE PROPHYLAXIS
     Dosage: SINGLE
     Route: 048
     Dates: start: 20140703, end: 20140703
  2. DEPAMAG [Suspect]
     Active Substance: VALPROATE MAGNESIUM
     Indication: PRODUCT USED FOR UNKNOWN INDICATION
     Dosage: SINGLE
     Route: 048
     Dates: start: 20140703, end: 20140703
  3. PAROXETINE [Suspect]
     Active Substance: PAROXETINE\PAROXETINE HYDROCHLORIDE
     Indication: DEPRESSION
     Dosage: SINGLE
     Route: 048
     Dates: start: 20140703, end: 20140703
  4. TOPAMAX [Suspect]
     Active Substance: TOPIRAMATE
     Dosage: SINGLE
     Route: 048
     Dates: start: 20140703, end: 20140703
  5. TOPAMAX [Suspect]
     Active Substance: TOPIRAMATE
     Indication: DEPRESSION
     Dosage: SINGLE
     Route: 048
     Dates: start: 20140703, end: 20140703
  6. PAROXETINE [Suspect]
     Active Substance: PAROXETINE\PAROXETINE HYDROCHLORIDE
     Dosage: SINGLE
     Route: 048
     Dates: start: 20140703, end: 20140703

REACTIONS (7)
  - Drug ineffective [None]
  - Sleep disorder [None]
  - Fear [None]
  - Intentional overdose [None]
  - Drug abuse [None]
  - Nightmare [None]
  - Intentional self-injury [None]

NARRATIVE: CASE EVENT DATE: 20140703
